FAERS Safety Report 7412292-5 (Version None)
Quarter: 2011Q2

REPORT INFORMATION
  Report Type: 
  Country: None (occurrence: None)
  Receive Date: 20110413
  Receipt Date: 20110404
  Transmission Date: 20111010
  Serious: Yes (Hospitalization)
  Sender: FDA-Public Use
  Company Number: JP-JNJFOC-20110207250

PATIENT
  Sex: Female

DRUGS (11)
  1. BONALON [Concomitant]
     Indication: OSTEOPOROSIS
     Route: 048
  2. GOLIMUMAB [Suspect]
     Indication: RHEUMATOID ARTHRITIS
     Route: 058
  3. PARIET [Concomitant]
     Indication: GASTROINTESTINAL DISORDER THERAPY
     Route: 048
  4. KETOPROFEN [Concomitant]
     Indication: RHEUMATOID ARTHRITIS
  5. MUCOSTA [Concomitant]
     Indication: GASTROINTESTINAL DISORDER THERAPY
     Route: 048
  6. FERRUM [Concomitant]
     Indication: IRON DEFICIENCY ANAEMIA
     Route: 048
  7. VOLTAREN [Concomitant]
     Indication: RHEUMATOID ARTHRITIS
     Route: 048
  8. VOLTAREN [Concomitant]
     Route: 048
  9. MERCAZOLE [Concomitant]
     Indication: HYPERTHYROIDISM
     Route: 048
  10. MEDROL [Concomitant]
     Indication: RHEUMATOID ARTHRITIS
     Route: 048
  11. CYTOTEC [Concomitant]
     Indication: GASTROINTESTINAL DISORDER THERAPY
     Route: 048

REACTIONS (1)
  - ARTHRITIS [None]
